FAERS Safety Report 24891902 (Version 1)
Quarter: 2025Q1

REPORT INFORMATION
  Report Type: Report from Study
  Country: US (occurrence: US)
  Receive Date: 20250127
  Receipt Date: 20250127
  Transmission Date: 20250408
  Serious: Yes (Other)
  Sender: ALEXION PHARMACEUTICALS
  Company Number: US-ASTRAZENECA-202501USA020940US

PATIENT

DRUGS (1)
  1. STRENSIQ [Suspect]
     Active Substance: ASFOTASE ALFA
     Route: 065

REACTIONS (4)
  - Nephrolithiasis [Unknown]
  - Seizure [Unknown]
  - Blood viscosity increased [Unknown]
  - Tooth loss [Unknown]
